FAERS Safety Report 8480090-X (Version None)
Quarter: 2012Q2

REPORT INFORMATION
  Report Type: 
  Country: None (occurrence: None)
  Receive Date: 20120629
  Receipt Date: 20120618
  Transmission Date: 20120825
  Serious: Yes (Hospitalization)
  Sender: FDA-Public Use
  Company Number: US-ELI_LILLY_AND_COMPANY-US201206007169

PATIENT
  Sex: Female

DRUGS (2)
  1. CYMBALTA [Suspect]
     Indication: DEPRESSION
     Dosage: 30 MG, QD
     Dates: start: 20060101
  2. CYMBALTA [Suspect]
     Dosage: 30 MG, QD
     Dates: start: 20120608

REACTIONS (6)
  - DRY SKIN [None]
  - NAUSEA [None]
  - VOMITING [None]
  - INTERVERTEBRAL DISC PROTRUSION [None]
  - MULTIPLE MYELOMA [None]
  - PRURITUS [None]
